FAERS Safety Report 8186035-4 (Version None)
Quarter: 2012Q1

REPORT INFORMATION
  Report Type: 
  Country: None (occurrence: None)
  Receive Date: 20120306
  Receipt Date: 20120227
  Transmission Date: 20120608
  Serious: Yes (Death)
  Sender: FDA-Public Use
  Company Number: US-BIOGENIDEC-2012BI001919

PATIENT
  Sex: Female

DRUGS (2)
  1. AVONEX [Suspect]
     Indication: MULTIPLE SCLEROSIS
     Route: 030
     Dates: start: 19991001, end: 20000501
  2. CYCLOPHOSPHAMIDE [Concomitant]
     Dates: start: 20000101, end: 20030101

REACTIONS (2)
  - DRUG INEFFECTIVE [None]
  - PULMONARY FIBROSIS [None]
